FAERS Safety Report 12278131 (Version 3)
Quarter: 2016Q2

REPORT INFORMATION
  Report Type: Report from Study
  Country: US (occurrence: US)
  Receive Date: 20160418
  Receipt Date: 20160621
  Transmission Date: 20160815
  Serious: Yes (Other)
  Sender: FDA-Public Use
  Company Number: PHEH2016US008665

PATIENT
  Age: 74 Year
  Sex: Male

DRUGS (1)
  1. COSENTYX [Suspect]
     Active Substance: SECUKINUMAB
     Indication: PSORIASIS
     Dosage: 300 MG, QMO
     Route: 058
     Dates: start: 20151126

REACTIONS (9)
  - Oral candidiasis [Recovering/Resolving]
  - Pain [Unknown]
  - Accidental exposure to product [Unknown]
  - Oropharyngeal pain [Unknown]
  - Malaise [Unknown]
  - Headache [Unknown]
  - Device issue [Unknown]
  - Incorrect dose administered [Unknown]
  - Injection site pain [Unknown]

NARRATIVE: CASE EVENT DATE: 20160421
